FAERS Safety Report 7989380-8 (Version None)
Quarter: 2011Q4

REPORT INFORMATION
  Report Type: 
  Country: None (occurrence: None)
  Receive Date: 20111219
  Receipt Date: 20111212
  Transmission Date: 20120403
  Serious: Yes (Hospitalization)
  Sender: FDA-Public Use
  Company Number: DE-AMGEN-DEUCT2011061207

PATIENT
  Age: 72 Year
  Sex: Female
  Weight: 82 kg

DRUGS (12)
  1. NEBIVOLOL HCL [Concomitant]
     Indication: HYPERTENSION
     Dosage: 2.5 MG, 2X/DAY
     Route: 048
  2. PREDNISOLONE [Concomitant]
     Dosage: 7.5 MG, 1X/DAY
     Route: 048
     Dates: start: 20011001
  3. HYDROCHLOROTHIAZIDE [Concomitant]
     Indication: HYPERTENSION
     Dosage: 25 UNK, 1X/DAY
     Route: 048
     Dates: start: 20070501
  4. SPIRIVA [Concomitant]
     Indication: CHRONIC OBSTRUCTIVE PULMONARY DISEASE
     Dosage: 2.5 UG, 2X/DAY
     Dates: start: 20090701
  5. ENBREL [Suspect]
     Indication: RHEUMATOID ARTHRITIS
     Dosage: 50 MG, QWK
     Route: 058
     Dates: start: 20110419, end: 20111116
  6. METHOTREXATE [Concomitant]
  7. OLMESARTAN MEDOXOMIL [Concomitant]
     Indication: HYPERTENSION
     Dosage: UNK
     Route: 048
     Dates: start: 20070701
  8. CELEBREX [Concomitant]
     Dosage: 200 MG, 1X/DAY
     Route: 048
     Dates: start: 20101101
  9. IVABRADINE [Concomitant]
     Indication: CORONARY ARTERY DISEASE
     Dosage: 7.5 MG, 1X/DAY
     Route: 048
     Dates: start: 20100401
  10. ZOLEDRONIC ACID [Concomitant]
     Dosage: ONCE A YEAR
     Route: 042
     Dates: start: 20080801
  11. PROTAPHANE MC [Concomitant]
     Indication: DIABETES MELLITUS
     Dosage: UNK
     Route: 058
     Dates: start: 20100801
  12. REPAGLINIDE [Concomitant]
     Indication: DIABETES MELLITUS
     Dosage: 0.5 MG, 1X/DAY
     Route: 048
     Dates: start: 20110101

REACTIONS (1)
  - RHEUMATOID ARTHRITIS [None]
